FAERS Safety Report 21303583 (Version 5)
Quarter: 2022Q3

REPORT INFORMATION
  Report Type: Report from Study
  Country: US (occurrence: US)
  Receive Date: 20220907
  Receipt Date: 20220913
  Transmission Date: 20221026
  Serious: No
  Sender: FDA-Public Use
  Company Number: US-NOVARTISTESTPH-NVSC2022US201886

PATIENT
  Sex: Female
  Weight: 50.794 kg

DRUGS (3)
  1. TREPROSTINIL [Suspect]
     Active Substance: TREPROSTINIL
     Indication: Pulmonary arterial hypertension
     Dosage: UNK, CONT, - 6 NG/KG/ M I N
     Route: 042
     Dates: start: 20220209
  2. SILDENAFIL CITRATE [Concomitant]
     Active Substance: SILDENAFIL CITRATE
     Indication: Product used for unknown indication
     Route: 065
  3. AMBRISENTAN [Concomitant]
     Active Substance: AMBRISENTAN
     Indication: Product used for unknown indication
     Route: 065

REACTIONS (7)
  - Catheter site haemorrhage [Unknown]
  - Anxiety [Unknown]
  - Insomnia [Unknown]
  - Chest discomfort [Unknown]
  - Back pain [Unknown]
  - Urticaria [Unknown]
  - Oedema peripheral [Unknown]
